FAERS Safety Report 11731662 (Version 1)
Quarter: 2015Q4

REPORT INFORMATION
  Report Type: Spontaneous
  Country: US (occurrence: US)
  Receive Date: 20151110
  Receipt Date: 20151110
  Transmission Date: 20160304
  Serious: No
  Sender: FDA-Public Use
  Company Number: US-ELI_LILLY_AND_COMPANY-US201201006346

PATIENT
  Sex: Male

DRUGS (1)
  1. FORTEO [Suspect]
     Active Substance: TERIPARATIDE
     Indication: OSTEOPOROSIS
     Dosage: UNK UNK, UNKNOWN

REACTIONS (6)
  - Radiotherapy [Unknown]
  - Muscle spasms [Unknown]
  - Headache [Unknown]
  - Mood altered [Unknown]
  - Pain in extremity [Not Recovered/Not Resolved]
  - Nightmare [Unknown]
